FAERS Safety Report 24440501 (Version 1)
Quarter: 2024Q4

REPORT INFORMATION
  Report Type: Spontaneous
  Country: GR (occurrence: GR)
  Receive Date: 20241016
  Receipt Date: 20241016
  Transmission Date: 20250115
  Serious: Yes (Hospitalization)
  Sender: ALKEM
  Company Number: GR-ALKEM LABORATORIES LIMITED-GR-ALKEM-2024-12035

PATIENT
  Age: 52 Year
  Sex: Female

DRUGS (6)
  1. DULOXETINE HYDROCHLORIDE [Interacting]
     Active Substance: DULOXETINE HYDROCHLORIDE
     Indication: Depressive symptom
     Dosage: 60 MILLIGRAM, OD
     Route: 065
  2. DULOXETINE HYDROCHLORIDE [Interacting]
     Active Substance: DULOXETINE HYDROCHLORIDE
     Indication: Musculoskeletal pain
  3. PAROXETINE [Interacting]
     Active Substance: PAROXETINE
     Indication: Restless legs syndrome
     Dosage: 20 MILLIGRAM, QD
     Route: 065
  4. PAROXETINE [Interacting]
     Active Substance: PAROXETINE
     Indication: Depression
  5. ALPRAZOLAM [Concomitant]
     Active Substance: ALPRAZOLAM
     Indication: Product used for unknown indication
     Dosage: 1.5 MILLIGRAM, TID (3 TIMES A DAY)
     Route: 065
  6. ALPRAZOLAM [Concomitant]
     Active Substance: ALPRAZOLAM
     Dosage: 0.5 MILLIGRAM (DOSE REDUCED) WEEKLY
     Route: 065

REACTIONS (2)
  - Drug interaction [Unknown]
  - Restless legs syndrome [Recovered/Resolved]
